FAERS Safety Report 13993971 (Version 1)
Quarter: 2017Q3

REPORT INFORMATION
  Report Type: Spontaneous
  Country: FR (occurrence: FR)
  Receive Date: 20170916
  Receipt Date: 20170916
  Transmission Date: 20171128
  Serious: Yes (Other)
  Sender: FDA-Public Use
  Company Number: FR-MERCK KGAA-2026533

PATIENT
  Age: 61 Year
  Sex: Female

DRUGS (1)
  1. NOVOTHYROX [Suspect]
     Active Substance: LEVOTHYROXINE SODIUM
     Indication: HYPOTHYROIDISM

REACTIONS (8)
  - Arrhythmia [Unknown]
  - Rash [Unknown]
  - Vertigo [Unknown]
  - Pruritus [Unknown]
  - Fatigue [Unknown]
  - Insomnia [Unknown]
  - Hyperhidrosis [Unknown]
  - Amnesia [Unknown]
